FAERS Safety Report 10626171 (Version 1)
Quarter: 2014Q4

REPORT INFORMATION
  Report Type: Spontaneous
  Country: US (occurrence: None)
  Receive Date: 20141121
  Receipt Date: 20141121
  Transmission Date: 20150529
  Serious: No
  Sender: FDA-Public Use
  Company Number: 163-1004-14081010

PATIENT
  Age: 62 Year
  Sex: Female
  Weight: 58.97 kg

DRUGS (4)
  1. METHADONE [Concomitant]
     Active Substance: METHADONE HYDROCHLORIDE
  2. ZOVIRAX (UNKNOWN) [Concomitant]
  3. OTEZLA [Suspect]
     Active Substance: APREMILAST
     Indication: PSORIATIC ARTHROPATHY
     Route: 048
     Dates: start: 20140715
  4. DIFLUCAN [Concomitant]
     Active Substance: FLUCONAZOLE

REACTIONS (4)
  - Abdominal discomfort [None]
  - Diarrhoea [None]
  - Hot flush [None]
  - Headache [None]

NARRATIVE: CASE EVENT DATE: 2014
